FAERS Safety Report 5529850-5 (Version None)
Quarter: 2007Q4

REPORT INFORMATION
  Report Type: 
  Country: None (occurrence: None)
  Receive Date: 20071127
  Receipt Date: 20071125
  Transmission Date: 20080405
  Serious: Yes (Hospitalization)
  Sender: FDA-Public Use
  Company Number: BEN-2007-031

PATIENT
  Age: 48 Year
  Sex: Male

DRUGS (7)
  1. DICYCLOMINE [Suspect]
     Indication: COLITIS
  2. DICYCLOMINE [Suspect]
     Indication: SALMONELLOSIS
  3. IMODIUM [Suspect]
     Indication: COLITIS
  4. IMODIUM [Suspect]
     Indication: SALMONELLOSIS
  5. FLAGYL [Concomitant]
  6. CIPROFLOXACIN [Concomitant]
  7. STEROIDS (UNSPECIFIED) [Concomitant]

REACTIONS (3)
  - DRUG INEFFECTIVE [None]
  - INTESTINAL PERFORATION [None]
  - MEGACOLON [None]
